FAERS Safety Report 10578953 (Version 1)
Quarter: 2014Q4

REPORT INFORMATION
  Report Type: Report from Study
  Country: KR (occurrence: KR)
  Receive Date: 20141112
  Receipt Date: 20141112
  Transmission Date: 20150529
  Serious: Yes (Death)
  Sender: FDA-Public Use
  Company Number: KR-BAYER-2014-162013

PATIENT
  Age: 63 Year
  Sex: Male
  Weight: 53 kg

DRUGS (9)
  1. GASTER [Concomitant]
     Active Substance: FAMOTIDINE
     Indication: GASTRIC DISORDER
     Dosage: 20 MG, BID
     Route: 048
     Dates: start: 20120918, end: 20121101
  2. ASPIRIN PROTECT [Suspect]
     Active Substance: ASPIRIN
     Dosage: 100 MG, QD
     Dates: start: 20110414, end: 20121101
  3. LOSARTAN POTASSIUM. [Concomitant]
     Active Substance: LOSARTAN POTASSIUM
     Indication: BLOOD PRESSURE MANAGEMENT
     Dosage: 100 MG, BID
     Route: 048
     Dates: start: 20120918, end: 20121101
  4. PLAVIX [Concomitant]
     Active Substance: CLOPIDOGREL BISULFATE
     Indication: MYOCARDIAL INFARCTION
     Dosage: 75 MG, QD
     Route: 048
     Dates: start: 20120918, end: 20121101
  5. VASTINAN [Concomitant]
     Indication: ANGINA PECTORIS
     Dosage: 35 MG, BID
     Route: 048
     Dates: start: 20120918, end: 20121101
  6. NORVASC [Concomitant]
     Active Substance: AMLODIPINE BESYLATE
     Indication: BLOOD PRESSURE MANAGEMENT
     Dosage: 5 MG, BID
     Route: 048
     Dates: start: 20120918, end: 20121101
  7. DILATREND [Concomitant]
     Active Substance: CARVEDILOL
     Indication: BLOOD PRESSURE MANAGEMENT
     Dosage: 12.5 MG, BID
     Route: 048
     Dates: start: 20120918, end: 20121101
  8. CORDARONE [Concomitant]
     Active Substance: AMIODARONE HYDROCHLORIDE
     Indication: ARRHYTHMIA
     Dosage: 200 MG, QD
     Route: 048
     Dates: start: 20120918, end: 20121101
  9. FEROBA [Concomitant]
     Indication: BLOOD IRON
     Dosage: 80 MG, BID
     Route: 048
     Dates: start: 20120918, end: 20121101

REACTIONS (1)
  - Cerebral haemorrhage [Fatal]

NARRATIVE: CASE EVENT DATE: 20121101
